FAERS Safety Report 23060460 (Version 4)
Quarter: 2024Q1

REPORT INFORMATION
  Report Type: Report from Study
  Country: CA (occurrence: CA)
  Receive Date: 20231012
  Receipt Date: 20240202
  Transmission Date: 20240410
  Serious: Yes (Other)
  Sender: FDA-Public Use
  Company Number: CA-JNJFOC-20231024194

PATIENT
  Age: 12 Year
  Sex: Male
  Weight: 37 kg

DRUGS (7)
  1. REMICADE [Suspect]
     Active Substance: INFLIXIMAB
     Indication: Colitis ulcerative
     Dosage: PATIENT RECEIVED INFUSION ON 24-AUG-2023, 10-AUG-2023
     Route: 042
     Dates: start: 20230801
  2. REMICADE [Suspect]
     Active Substance: INFLIXIMAB
     Dosage: PATIENT WOULD RECEIVED 2 DOSES
     Route: 042
     Dates: start: 2023
  3. REMICADE [Suspect]
     Active Substance: INFLIXIMAB
     Route: 042
     Dates: start: 2023
  4. REMICADE [Suspect]
     Active Substance: INFLIXIMAB
     Dosage: STAT DOSE REQUESTED. WEEK 0 DOSE
     Route: 042
     Dates: start: 20231026
  5. REMICADE [Suspect]
     Active Substance: INFLIXIMAB
     Dosage: V3: RE-INDUCTION: DOSE REQUESTED 600MG IV AT WEEK 2, WEEK 4
     Route: 042
     Dates: start: 2023
  6. REMICADE [Suspect]
     Active Substance: INFLIXIMAB
     Dosage: PATIENT RECEIVED INFUSION ON 24-AUG-2023
     Route: 042
     Dates: start: 20230801
  7. REMICADE [Suspect]
     Active Substance: INFLIXIMAB
     Route: 042

REACTIONS (4)
  - Colitis ulcerative [Unknown]
  - Drug level below therapeutic [Unknown]
  - Off label use [Unknown]
  - Incorrect drug administration rate [Unknown]

NARRATIVE: CASE EVENT DATE: 20230101
